FAERS Safety Report 6526667-X (Version None)
Quarter: 2010Q1

REPORT INFORMATION
  Report Type: 
  Country: None (occurrence: None)
  Receive Date: 20100105
  Receipt Date: 20091222
  Transmission Date: 20100710
  Serious: Yes (Hospitalization)
  Sender: FDA-Public Use
  Company Number: JP-AMGEN-US207807

PATIENT
  Sex: Male
  Weight: 65 kg

DRUGS (7)
  1. ENBREL [Suspect]
     Indication: RHEUMATOID ARTHRITIS
     Route: 058
     Dates: start: 20060123, end: 20061005
  2. ENBREL [Suspect]
     Route: 058
     Dates: start: 20060915, end: 20061005
  3. MOHRUS [Concomitant]
     Indication: RHEUMATOID ARTHRITIS
     Dosage: UNSPECIFIED TAP
     Dates: start: 20030707
  4. VOLTAREN [Concomitant]
     Indication: RHEUMATOID ARTHRITIS
     Route: 054
     Dates: start: 20030605
  5. SALAZOSULFAPYRIDINE [Concomitant]
     Indication: RHEUMATOID ARTHRITIS
     Route: 048
  6. CYTOTEC [Concomitant]
     Route: 048
     Dates: start: 20030811
  7. FOLIAMIN [Concomitant]
     Route: 048
     Dates: start: 20030811

REACTIONS (2)
  - STAPHYLOCOCCAL INFECTION [None]
  - SUBCUTANEOUS ABSCESS [None]
